FAERS Safety Report 24029017 (Version 1)
Quarter: 2024Q2

REPORT INFORMATION
  Report Type: Spontaneous
  Country: US (occurrence: None)
  Receive Date: 20240627
  Receipt Date: 20240627
  Transmission Date: 20240716
  Serious: Yes (unspecified)
  Sender: FDA-Public Use
  Company Number: None

PATIENT
  Age: 32 Year
  Sex: Female
  Weight: 67.1 kg

DRUGS (1)
  1. FERRLECIT [Suspect]
     Active Substance: SODIUM FERRIC GLUCONATE COMPLEX

REACTIONS (6)
  - Pain in extremity [None]
  - Urticaria [None]
  - Erythema [None]
  - Erythema [None]
  - Pruritus [None]
  - Blood pressure decreased [None]

NARRATIVE: CASE EVENT DATE: 20240618
